FAERS Safety Report 5157057-2 (Version None)
Quarter: 2006Q4

REPORT INFORMATION
  Report Type: 
  Country: None (occurrence: None)
  Receive Date: 20061127
  Receipt Date: 20060927
  Transmission Date: 20070319
  Serious: No
  Sender: FDA-Public Use
  Company Number: JP-ELI_LILLY_AND_COMPANY-JP200610000340

PATIENT
  Age: 58 Year
  Sex: Female
  Weight: 44.2 kg

DRUGS (12)
  1. DEPAKENE [Concomitant]
     Dosage: 800 MG, DAILY (1/D)
     Route: 048
     Dates: start: 20060130
  2. ROHYPNOL     /NET/ [Concomitant]
     Dosage: 2 MG, DAILY (1/D)
     Route: 048
     Dates: start: 20050408
  3. THYRADIN-S [Concomitant]
     Dosage: 50 UG, DAILY (1/D)
     Route: 048
     Dates: start: 20060920
  4. MAGNESIUM OXIDE [Concomitant]
     Dosage: 2 G, DAILY (1/D)
     Route: 048
     Dates: start: 20030723
  5. SENNOSIDE A+B [Concomitant]
     Dosage: 20 MG, DAILY (1/D)
     Route: 048
     Dates: start: 20040212
  6. PROHEPARUM [Concomitant]
     Dosage: 300 MG, DAILY (1/D)
     Route: 048
     Dates: start: 20030723
  7. URSO [Concomitant]
     Dosage: 150 MG, DAILY (1/D)
     Route: 048
     Dates: start: 20030807
  8. UBRETID [Concomitant]
     Dosage: 10 MG, DAILY (1/D)
     Route: 048
     Dates: start: 20050418
  9. ZYPREXA [Suspect]
     Indication: SCHIZOPHRENIA
     Dosage: 5 MG, DAILY (1/D)
     Route: 048
     Dates: start: 20051003, end: 20051016
  10. ZYPREXA [Suspect]
     Dosage: 10 MG, DAILY (1/D)
     Route: 048
     Dates: start: 20051007, end: 20051013
  11. ZYPREXA [Suspect]
     Dosage: 20 MG, DAILY (1/D)
     Route: 048
     Dates: start: 20051014
  12. TEGRETOL [Concomitant]
     Dosage: 600 MG, DAILY (1/D)
     Route: 048
     Dates: start: 20050523

REACTIONS (1)
  - PANCYTOPENIA [None]
